FAERS Safety Report 6242252-1 (Version None)
Quarter: 2009Q2

REPORT INFORMATION
  Report Type: 
  Country: None (occurrence: None)
  Receive Date: 20090624
  Receipt Date: 20090612
  Transmission Date: 20091009
  Serious: Yes (Hospitalization)
  Sender: FDA-Public Use
  Company Number: CA-WYE-H09769609

PATIENT
  Sex: Male

DRUGS (2)
  1. EFFEXOR [Suspect]
     Route: 064
  2. CARBAMAZEPINE [Concomitant]

REACTIONS (6)
  - DRUG EXPOSURE DURING PREGNANCY [None]
  - DRUG WITHDRAWAL SYNDROME NEONATAL [None]
  - IRRITABILITY [None]
  - NEONATAL TACHYPNOEA [None]
  - PREMATURE BABY [None]
  - TREMOR NEONATAL [None]
